FAERS Safety Report 10228089 (Version 2)
Quarter: 2015Q1

REPORT INFORMATION
  Report Type: Spontaneous
  Country: US (occurrence: US)
  Receive Date: 20140610
  Receipt Date: 20150209
  Transmission Date: 20150720
  Serious: Yes (Hospitalization)
  Sender: FDA-Public Use
  Company Number: US-BAYER-2014-081669

PATIENT
  Age: 36 Year
  Sex: Female

DRUGS (4)
  1. YASMIN [Suspect]
     Active Substance: DROSPIRENONE\ETHINYL ESTRADIOL
     Dosage: UNK
     Dates: start: 20090614, end: 20091009
  2. GIANVI [Suspect]
     Active Substance: DROSPIRENONE\ETHINYL ESTRADIOL
     Dosage: UNK
     Dates: start: 20090614, end: 20091009
  3. OCELLA [Suspect]
     Active Substance: DROSPIRENONE\ETHINYL ESTRADIOL
     Dosage: UNK
     Dates: start: 20090614, end: 20091009
  4. YAZ [Suspect]
     Active Substance: DROSPIRENONE\ETHINYL ESTRADIOL
     Dosage: UNK
     Dates: start: 20090614, end: 20091009

REACTIONS (8)
  - Injury [None]
  - Emotional distress [None]
  - Fear [None]
  - Pulmonary embolism [None]
  - Anhedonia [None]
  - Pain [None]
  - Anxiety [None]
  - Psychological trauma [None]

NARRATIVE: CASE EVENT DATE: 20091009
